FAERS Safety Report 7829583-6 (Version None)
Quarter: 2011Q4

REPORT INFORMATION
  Report Type: 
  Country: None (occurrence: None)
  Receive Date: 20111020
  Receipt Date: 20111017
  Transmission Date: 20120403
  Serious: Yes (Hospitalization, Other)
  Sender: FDA-Public Use
  Company Number: US-AMGEN-USASP2011053748

PATIENT
  Age: 40 Year
  Sex: Female

DRUGS (1)
  1. ENBREL [Suspect]
     Indication: RHEUMATOID ARTHRITIS
     Dosage: 50 MG, Q2WK
     Dates: start: 20100901, end: 20110808

REACTIONS (5)
  - SINUSITIS [None]
  - PLEURAL EFFUSION [None]
  - JOINT SWELLING [None]
  - PULMONARY EMBOLISM [None]
  - ARTHRALGIA [None]
